FAERS Safety Report 25595799 (Version 1)
Quarter: 2025Q3

REPORT INFORMATION
  Report Type: Spontaneous
  Country: EU (occurrence: EU)
  Receive Date: 20250723
  Receipt Date: 20250723
  Transmission Date: 20251021
  Serious: Yes (Hospitalization)
  Sender: TEVA
  Company Number: None

PATIENT
  Age: 55 Year
  Sex: Male
  Weight: 80 kg

DRUGS (2)
  1. GABAPENTIN [Suspect]
     Active Substance: GABAPENTIN
     Indication: Back pain
     Dosage: 1200MG EVERY 12 HOURS, GABAPENTIN (2641A)
     Route: 048
     Dates: start: 20250525, end: 20250527
  2. ZALDIAR [Suspect]
     Active Substance: ACETAMINOPHEN\TRAMADOL HYDROCHLORIDE
     Indication: Back pain
     Dosage: 1 TABLET EVERY 8 HOURS, ZALDIAR 37.5 MG/325 MG, 20 TABLETS
     Route: 048
     Dates: start: 20250525, end: 20250527

REACTIONS (2)
  - Choreoathetosis [Recovering/Resolving]
  - Gait disturbance [Recovering/Resolving]

NARRATIVE: CASE EVENT DATE: 20250527
